FAERS Safety Report 6595313-1 (Version None)
Quarter: 2010Q1

REPORT INFORMATION
  Report Type: 
  Country: None (occurrence: None)
  Receive Date: 20100219
  Receipt Date: 20100219
  Transmission Date: 20100710
  Serious: Yes (Hospitalization)
  Sender: FDA-Public Use
  Company Number: None

PATIENT
  Age: 57 Year
  Sex: Female

DRUGS (13)
  1. HEPARIN [Suspect]
     Indication: THROMBOSIS PROPHYLAXIS
     Dosage: 5000 UNITS Q8H SQ
     Route: 058
     Dates: start: 20091105, end: 20091116
  2. TYLENOL-500 [Concomitant]
  3. NEURONTIN [Concomitant]
  4. NEXIUM [Concomitant]
  5. FOLIC ACID [Concomitant]
  6. SINGULAIR [Concomitant]
  7. LEXAPRO [Concomitant]
  8. LIORESAL [Concomitant]
  9. LOPRESSOR [Concomitant]
  10. PLAVIX [Concomitant]
  11. FOSAMAX [Concomitant]
  12. OSCAL D [Concomitant]
  13. XALATAN [Concomitant]

REACTIONS (2)
  - DEEP VEIN THROMBOSIS [None]
  - HEPARIN-INDUCED THROMBOCYTOPENIA [None]
